FAERS Safety Report 6486247-1 (Version None)
Quarter: 2009Q4

REPORT INFORMATION
  Report Type: 
  Country: None (occurrence: None)
  Receive Date: 20091209
  Receipt Date: 20090727
  Transmission Date: 20100525
  Serious: No
  Sender: FDA-Public Use
  Company Number: US-AMGEN-KDL357488

PATIENT
  Sex: Male

DRUGS (1)
  1. ENBREL [Suspect]
     Indication: PSORIASIS
     Route: 058
     Dates: start: 20040401

REACTIONS (4)
  - CYSTITIS [None]
  - MUSCULOSKELETAL PAIN [None]
  - PSORIASIS [None]
  - TONSILLITIS [None]
